FAERS Safety Report 17083157 (Version 4)
Quarter: 2022Q1

REPORT INFORMATION
  Report Type: Report from Study
  Country: US (occurrence: US)
  Receive Date: 20191127
  Receipt Date: 20220111
  Transmission Date: 20220423
  Serious: Yes (Hospitalization, Other)
  Sender: FDA-Public Use
  Company Number: US-JAZZ-2019-US-016383

PATIENT
  Sex: Male

DRUGS (20)
  1. XYREM [Suspect]
     Active Substance: SODIUM OXYBATE
     Indication: Sleep disorder
     Dosage: 2.25 G, BID
     Route: 048
     Dates: start: 201002, end: 201002
  2. XYREM [Suspect]
     Active Substance: SODIUM OXYBATE
     Dosage: DOSE ADJUSTMENT
     Route: 048
     Dates: start: 201002, end: 201009
  3. XYREM [Suspect]
     Active Substance: SODIUM OXYBATE
     Dosage: 4.5 G, BID
     Route: 048
     Dates: start: 201009, end: 201902
  4. AMBIEN [Suspect]
     Active Substance: ZOLPIDEM TARTRATE
     Indication: Sleep disorder
  5. LITHIUM [Suspect]
     Active Substance: LITHIUM
     Indication: Product used for unknown indication
  6. CLONAZEPAM [Concomitant]
     Active Substance: CLONAZEPAM
     Indication: Product used for unknown indication
     Dosage: UNK
     Dates: end: 201911
  7. CYTOMEL [Concomitant]
     Active Substance: LIOTHYRONINE SODIUM
     Indication: Product used for unknown indication
  8. EFFEXOR [Concomitant]
     Active Substance: VENLAFAXINE HYDROCHLORIDE
     Indication: Bipolar disorder
     Dosage: UNK
     Dates: end: 201911
  9. EFFEXOR [Concomitant]
     Active Substance: VENLAFAXINE HYDROCHLORIDE
     Indication: Depression
  10. EFFEXOR [Concomitant]
     Active Substance: VENLAFAXINE HYDROCHLORIDE
     Indication: Anxiety
  11. EFFEXOR [Concomitant]
     Active Substance: VENLAFAXINE HYDROCHLORIDE
     Indication: Mania
  12. LEVOTHYROXINE [Concomitant]
     Active Substance: LEVOTHYROXINE
     Indication: Hypothyroidism
     Dosage: UNK
     Dates: end: 201911
  13. LITHOBID [Concomitant]
     Active Substance: LITHIUM CARBONATE
     Indication: Product used for unknown indication
  14. PIROXICAM [Concomitant]
     Active Substance: PIROXICAM
     Indication: Depression
  15. RISPERDAL [Concomitant]
     Active Substance: RISPERIDONE
     Indication: Mania
     Dosage: UNK
  16. SILDENAFIL [Concomitant]
     Active Substance: SILDENAFIL
     Indication: Product used for unknown indication
     Dosage: UNK
     Dates: end: 201911
  17. SULFACETAMIDE [Concomitant]
     Active Substance: SULFACETAMIDE
     Indication: Product used for unknown indication
     Dosage: UNK
     Dates: end: 201911
  18. TESTOSTERONE [Concomitant]
     Active Substance: TESTOSTERONE
     Indication: Product used for unknown indication
  19. VITAMIN D3 [Concomitant]
     Active Substance: CHOLECALCIFEROL
     Indication: Product used for unknown indication
  20. CANNABIDIOL\HERBALS [Concomitant]
     Active Substance: CANNABIDIOL\HERBALS
     Indication: Depression

REACTIONS (14)
  - Nephrogenic diabetes insipidus [Not Recovered/Not Resolved]
  - Erectile dysfunction [Unknown]
  - Drug abuse [Unknown]
  - Suicidal ideation [Recovered/Resolved]
  - Suicide attempt [Recovered/Resolved]
  - Depression [Unknown]
  - Asthma exercise induced [Unknown]
  - Acne cystic [Recovering/Resolving]
  - Dyspepsia [Unknown]
  - Blood pressure increased [Unknown]
  - Therapeutic response decreased [Unknown]
  - Enuresis [Unknown]
  - Weight decreased [Unknown]
  - Alcohol abuse [Unknown]

NARRATIVE: CASE EVENT DATE: 20130101
